FAERS Safety Report 5406244-4 (Version None)
Quarter: 2007Q3

REPORT INFORMATION
  Report Type: 
  Country: None (occurrence: None)
  Receive Date: 20070806
  Receipt Date: 20070801
  Transmission Date: 20080115
  Serious: Yes (Life-Threatening)
  Sender: FDA-Public Use
  Company Number: HQWYE328701AUG07

PATIENT
  Age: 46 Year
  Sex: Female

DRUGS (1)
  1. PROPRANOLOL HYDROCHLORIDE [Suspect]
     Indication: THYROTOXIC CRISIS
     Dosage: 40 MG X 1 DOSE
     Route: 048

REACTIONS (1)
  - CIRCULATORY COLLAPSE [None]
